FAERS Safety Report 6996910-1 (Version None)
Quarter: 2010Q3

REPORT INFORMATION
  Report Type: 
  Country: None (occurrence: None)
  Receive Date: 20100918
  Receipt Date: 20090804
  Transmission Date: 20110219
  Serious: No
  Sender: FDA-Public Use
  Company Number: US-WYE-H10444009

PATIENT
  Sex: Female

DRUGS (4)
  1. EFFEXOR XR [Suspect]
     Indication: DEPRESSION
     Route: 048
     Dates: start: 20060101, end: 20060601
  2. EFFEXOR XR [Suspect]
     Dosage: ATTEMPTED TO DISCONTINUE, BUT DECIDED TO STAY ON THE MEDICATION
     Route: 048
     Dates: start: 20060601
  3. EFFEXOR XR [Suspect]
     Route: 048
     Dates: start: 20060101
  4. ORTHO-NOVUM [Concomitant]

REACTIONS (4)
  - DIZZINESS [None]
  - DRUG WITHDRAWAL SYNDROME [None]
  - FEELING HOT [None]
  - MUSCULAR WEAKNESS [None]
